FAERS Safety Report 9054994 (Version 8)
Quarter: 2013Q3

REPORT INFORMATION
  Report Type: Spontaneous
  Country: US (occurrence: US)
  Receive Date: 20130206
  Receipt Date: 20130820
  Transmission Date: 20140515
  Serious: Yes (Hospitalization, Disabling, Other)
  Sender: FDA-Public Use
  Company Number: US-009507513-1302USA001370

PATIENT
  Age: 58 Year
  Sex: Male
  Weight: 99.77 kg

DRUGS (12)
  1. PEGINTRON [Suspect]
     Indication: HEPATIC CIRRHOSIS
     Dosage: 150 MICROGRAM/0.5 ML, QW
     Route: 058
     Dates: start: 20121221
  2. PEGINTRON [Suspect]
     Dosage: 150 MICROGRAM/0.5ML, QW
     Route: 058
     Dates: start: 20130115
  3. PEGINTRON [Suspect]
     Dosage: UNK
     Route: 058
  4. PEGINTRON [Suspect]
     Dosage: UNK
     Route: 058
     Dates: start: 20030128, end: 20030528
  5. PEGINTRON [Suspect]
     Dosage: 0.5 ML, QW
     Route: 058
  6. PEGINTRON [Suspect]
     Dosage: 0.3 ML, QW
     Route: 058
  7. VICTRELIS [Suspect]
     Indication: HEPATIC CIRRHOSIS
     Dosage: 800 MG, TAKE 4 CAPS THREE TIMES A DAY W/FOOD
     Route: 048
     Dates: start: 20130116
  8. VICTRELIS [Suspect]
     Indication: HEPATITIS C
     Dosage: UNK
     Route: 048
     Dates: start: 20130128
  9. VICTRELIS [Suspect]
     Indication: MULTIPLE SCLEROSIS
     Dosage: FOUR OF THE 200 MG TABLETS, THREE TIMES A DAY WITH FOOD
     Route: 048
     Dates: start: 20121221
  10. VICTRELIS [Suspect]
     Dosage: 800 MG, TID
     Route: 048
  11. RIBAPAK [Suspect]
     Indication: HEPATIC CIRRHOSIS
     Dosage: UNK
     Route: 048
     Dates: start: 20121221
  12. RIBAPAK [Suspect]
     Dosage: 600 MG, BID WITH FOOD
     Route: 048

REACTIONS (25)
  - Adverse event [Unknown]
  - Injection site mass [Unknown]
  - Vomiting [Unknown]
  - Staphylococcal infection [Not Recovered/Not Resolved]
  - Rash [Unknown]
  - Rash [Unknown]
  - Nausea [Unknown]
  - Platelet count decreased [Unknown]
  - Hepatic neoplasm [Unknown]
  - Pyrexia [Unknown]
  - Red blood cell count decreased [Unknown]
  - Chills [Unknown]
  - Hepatic cancer [Not Recovered/Not Resolved]
  - Musculoskeletal chest pain [Not Recovered/Not Resolved]
  - Alopecia [Not Recovered/Not Resolved]
  - Fatigue [Not Recovered/Not Resolved]
  - Nausea [Not Recovered/Not Resolved]
  - Dysgeusia [Not Recovered/Not Resolved]
  - Rash [Not Recovered/Not Resolved]
  - Platelet count decreased [Not Recovered/Not Resolved]
  - Feeling abnormal [Unknown]
  - Somnolence [Unknown]
  - Asthenia [Unknown]
  - Fatigue [Unknown]
  - Platelet count decreased [Unknown]
